FAERS Safety Report 9056776 (Version 3)
Quarter: 2013Q2

REPORT INFORMATION
  Report Type: Spontaneous
  Country: FR (occurrence: FR)
  Receive Date: 20130201
  Receipt Date: 20130620
  Transmission Date: 20140414
  Serious: Yes (Other)
  Sender: FDA-Public Use
  Company Number: FR-ASTELLAS-2013EU000845

PATIENT
  Age: 69 Year
  Sex: Male

DRUGS (1)
  1. VESICARE [Suspect]
     Indication: URINARY TRACT DISORDER
     Dosage: UNK
     Route: 048
     Dates: start: 20120410, end: 20120824

REACTIONS (1)
  - Dementia Alzheimer^s type [Unknown]
